FAERS Safety Report 13181475 (Version 1)
Quarter: 2017Q1

REPORT INFORMATION
  Report Type: Spontaneous
  Country: US (occurrence: US)
  Receive Date: 20170202
  Receipt Date: 20170202
  Transmission Date: 20170428
  Serious: No
  Sender: FDA-Public Use
  Company Number: US-PFIZER INC-2017045795

PATIENT
  Sex: Female

DRUGS (2)
  1. PREMARIN [Suspect]
     Active Substance: ESTROGENS, CONJUGATED
     Dosage: UNK
     Dates: start: 1996
  2. ESTRADIOL. [Suspect]
     Active Substance: ESTRADIOL
     Dosage: UNK

REACTIONS (3)
  - Alopecia [Unknown]
  - Asthenia [Unknown]
  - Hot flush [Unknown]
